FAERS Safety Report 4940590-3 (Version None)
Quarter: 2006Q1

REPORT INFORMATION
  Report Type: 
  Country: None (occurrence: None)
  Receive Date: 20060201
  Receipt Date: 20051029
  Transmission Date: 20060701
  Serious: No
  Sender: FDA-Public Use
  Company Number: 2005PV003657

PATIENT
  Age: 63 Year
  Sex: Female
  Weight: 127.0072 kg

DRUGS (7)
  1. BYETTA [Suspect]
     Indication: DIABETES MELLITUS NON-INSULIN-DEPENDENT
     Dosage: 5 MCG;BID;SC
     Route: 058
     Dates: start: 20051020, end: 20051029
  2. METFORMIN [Concomitant]
  3. HUMALOG U [Concomitant]
  4. ENBREL [Concomitant]
  5. DIOVAN [Concomitant]
  6. PREVACID [Concomitant]
  7. INHALER [Concomitant]

REACTIONS (5)
  - BLOOD GLUCOSE INCREASED [None]
  - CHEST PAIN [None]
  - DYSPNOEA [None]
  - HERPES ZOSTER [None]
  - NAUSEA [None]
